FAERS Safety Report 18617802 (Version 1)
Quarter: 2020Q4

REPORT INFORMATION
  Report Type: Spontaneous
  Country: US (occurrence: US)
  Receive Date: 20201215
  Receipt Date: 20201215
  Transmission Date: 20210114
  Serious: Yes (Hospitalization, Disabling, Other)
  Sender: FDA-Public Use
  Company Number: US-009507513-2012USA005608

PATIENT
  Sex: Female

DRUGS (2)
  1. FOSAMAX [Suspect]
     Active Substance: ALENDRONATE SODIUM
     Dosage: UNK
     Dates: start: 200810, end: 201002
  2. FOSAMAX [Suspect]
     Active Substance: ALENDRONATE SODIUM
     Indication: OSTEOPENIA
     Dosage: 70 MILLIGRAM, QW (10 MILLIGRAM DAILY)
     Dates: start: 200309

REACTIONS (9)
  - Oesophageal disorder [Unknown]
  - Tendonitis [Unknown]
  - Pain in extremity [Unknown]
  - Gait disturbance [Unknown]
  - Asthenia [Unknown]
  - Thrombosis [Recovered/Resolved]
  - Atypical femur fracture [Unknown]
  - Loss of personal independence in daily activities [Unknown]
  - Joint range of motion decreased [Unknown]

NARRATIVE: CASE EVENT DATE: 2009
